FAERS Safety Report 5942479-X (Version None)
Quarter: 2008Q4

REPORT INFORMATION
  Report Type: 
  Country: None (occurrence: None)
  Receive Date: 20081105
  Receipt Date: 20081024
  Transmission Date: 20090506
  Serious: Yes (Disabling, Other)
  Sender: FDA-Public Use
  Company Number: DE-PFIZER INC-2008083201

PATIENT
  Sex: Female
  Weight: 70 kg

DRUGS (2)
  1. AROMASIN [Suspect]
     Indication: BREAST CANCER
     Route: 048
     Dates: start: 20070708, end: 20080501
  2. AROMASIN [Suspect]
     Route: 048
     Dates: start: 20080925

REACTIONS (2)
  - CHORIORETINOPATHY [None]
  - VISUAL ACUITY REDUCED [None]
